FAERS Safety Report 6104306-X (Version None)
Quarter: 2009Q1

REPORT INFORMATION
  Report Type: 
  Country: None (occurrence: None)
  Receive Date: 20090305
  Receipt Date: 20090223
  Transmission Date: 20090719
  Serious: Yes (Other)
  Sender: FDA-Public Use
  Company Number: GB-ELI_LILLY_AND_COMPANY-GB200901003144

PATIENT
  Sex: Female

DRUGS (14)
  1. FORTEO [Suspect]
     Dosage: 20 UG, UNK
     Route: 058
     Dates: start: 20080910, end: 20081212
  2. ANABOLIC STEROIDS [Concomitant]
     Indication: COLITIS ULCERATIVE
  3. WARFARIN SODIUM [Concomitant]
     Dosage: 4 MG, UNK
  4. AZATHIOPRINE [Concomitant]
     Dosage: 75 MG, UNK
  5. ADCAL D3 [Concomitant]
  6. FUROSEMIDE [Concomitant]
     Dosage: 40 MG, DAILY (1/D)
  7. FENTANYL [Concomitant]
     Dosage: 175 MG, UNK
  8. ORAMORPH SR [Concomitant]
  9. ATORVASTATIN [Concomitant]
  10. ISOSORBIDE MONONITRATE [Concomitant]
  11. NICORANDIL [Concomitant]
     Dosage: 10 MG, 2/D
  12. ASACOL [Concomitant]
  13. DOMPERIDONE [Concomitant]
  14. CANDESARTAN [Concomitant]
     Dosage: 4 MG, UNK

REACTIONS (3)
  - BLISTER [None]
  - MOUTH ULCERATION [None]
  - PEMPHIGOID [None]
